FAERS Safety Report 12676228 (Version 1)
Quarter: 2016Q3

REPORT INFORMATION
  Report Type: Spontaneous
  Country: US (occurrence: None)
  Receive Date: 20160822
  Receipt Date: 20160822
  Transmission Date: 20161109
  Serious: No
  Sender: FDA-Public Use
  Company Number: None

PATIENT
  Age: 82 Year
  Sex: Male
  Weight: 71.67 kg

DRUGS (4)
  1. COMBIVENT RESPIMAT [Suspect]
     Active Substance: ALBUTEROL SULFATE\IPRATROPIUM BROMIDE
     Indication: CHRONIC OBSTRUCTIVE PULMONARY DISEASE
     Dosage: 20MCG/ACTUATIN 1 PULL Q4-6H BY MOUTH
     Route: 048
  2. OSTEO BIFLEX [Concomitant]
     Active Substance: CHONDROITIN SULFATE A\GLUCOSAMINE
  3. DHEA [Concomitant]
     Active Substance: PRASTERONE
  4. PREVAGEN [Concomitant]
     Active Substance: DIETARY SUPPLEMENT

REACTIONS (2)
  - Product packaging quantity issue [None]
  - Drug ineffective [None]

NARRATIVE: CASE EVENT DATE: 20160802
